FAERS Safety Report 5150508-9 (Version None)
Quarter: 2006Q4

REPORT INFORMATION
  Report Type: 
  Country: None (occurrence: None)
  Receive Date: 20061114
  Receipt Date: 20061106
  Transmission Date: 20070319
  Serious: Yes (Hospitalization)
  Sender: FDA-Public Use
  Company Number: FR-GLAXOSMITHKLINE-B0446220A

PATIENT
  Age: 76 Year
  Sex: Female
  Weight: 70 kg

DRUGS (8)
  1. AUGMENTIN '125' [Suspect]
     Indication: PNEUMONIA
     Route: 042
     Dates: start: 20060603, end: 20060605
  2. ATARAX [Suspect]
     Dosage: 100MG PER DAY
     Route: 048
  3. LEVOTHYROXINE SODIUM [Suspect]
     Dosage: 150MG PER DAY
     Route: 048
  4. NOVORAPID [Suspect]
     Route: 065
  5. NOVOMIX [Suspect]
     Route: 065
  6. PROTAMINE SULFATE [Concomitant]
     Indication: CONDITION AGGRAVATED
     Route: 065
  7. PROTAMINE SULFATE [Concomitant]
     Indication: DIABETES MELLITUS
     Route: 065
  8. SORIATANE [Concomitant]

REACTIONS (3)
  - C-REACTIVE PROTEIN INCREASED [None]
  - PSORIASIS [None]
  - RASH ERYTHEMATOUS [None]
